FAERS Safety Report 17776037 (Version 1)
Quarter: 2020Q2

REPORT INFORMATION
  Report Type: Spontaneous
  Country: US (occurrence: US)
  Receive Date: 20200513
  Receipt Date: 20200513
  Transmission Date: 20200714
  Serious: No
  Sender: FDA-Public Use
  Company Number: US-PFIZER INC-2020190338

PATIENT
  Age: 90 Year
  Sex: Female
  Weight: 85.28 kg

DRUGS (2)
  1. IBRANCE [Suspect]
     Active Substance: PALBOCICLIB
     Indication: BREAST CANCER METASTATIC
     Dosage: 100 MG, ONCE DAILY, 3 WEEKS ON, AND ONE WEEK OFF
     Route: 048
     Dates: start: 20200402, end: 20200419
  2. FULVESTRANT. [Concomitant]
     Active Substance: FULVESTRANT
     Indication: NEOPLASM MALIGNANT
     Dosage: UNK (RECEIVES VIA INJECTION EVERY TWO WEEKS)

REACTIONS (6)
  - Dyspnoea [Unknown]
  - Dizziness [Recovered/Resolved]
  - Condition aggravated [Unknown]
  - Insomnia [Unknown]
  - Body height decreased [Unknown]
  - Weight abnormal [Unknown]

NARRATIVE: CASE EVENT DATE: 202004
